FAERS Safety Report 9019763 (Version 1)
Quarter: 2013Q1

REPORT INFORMATION
  Report Type: Spontaneous
  Country: JP (occurrence: JP)
  Receive Date: 20130118
  Receipt Date: 20130118
  Transmission Date: 20140127
  Serious: Yes (Other)
  Sender: FDA-Public Use
  Company Number: JP-JNJFOC-20130105607

PATIENT
  Sex: 0

DRUGS (1)
  1. INFLIXIMAB, RECOMBINANT [Suspect]
     Indication: BEHCET^S SYNDROME
     Route: 042

REACTIONS (3)
  - Bacterial infection [Unknown]
  - Pelvic inflammatory disease [Unknown]
  - Adverse drug reaction [Unknown]
